FAERS Safety Report 6429928-8 (Version None)
Quarter: 2009Q4

REPORT INFORMATION
  Report Type: 
  Country: None (occurrence: None)
  Receive Date: 20091103
  Receipt Date: 20091019
  Transmission Date: 20100525
  Serious: Yes (Hospitalization)
  Sender: FDA-Public Use
  Company Number: 02100-JPN-07-0155

PATIENT
  Age: 76 Year
  Sex: Female
  Weight: 45.9 kg

DRUGS (7)
  1. PLETAL [Suspect]
     Indication: CEREBRAL INFARCTION
     Dosage: 81 MG, QD, ORAL
     Route: 048
     Dates: start: 20060926, end: 20070222
  2. AMLODIN (AMLODIPINE BESILATE) TABLET [Concomitant]
  3. FLUITRAN (TRICHLORMETHIAZIDE) TABLET [Concomitant]
  4. DIOVAN [Concomitant]
  5. DOGMATYL (SULPIRIDE) TABLET [Concomitant]
  6. SOFT SANTEAR (AGENTS FOR OPHTHALMIC USE) EYE DROPS [Concomitant]
  7. HYALEIN (HYALURONATE SODIUM) EYE DROPS [Concomitant]

REACTIONS (4)
  - ARTERIAL THROMBOSIS [None]
  - COLITIS ISCHAEMIC [None]
  - HEADACHE [None]
  - HYPERTENSION [None]
